FAERS Safety Report 7916678-1 (Version None)
Quarter: 2011Q4

REPORT INFORMATION
  Report Type: 
  Country: None (occurrence: None)
  Receive Date: 20111116
  Receipt Date: 20111104
  Transmission Date: 20120403
  Serious: Yes (Other)
  Sender: FDA-Public Use
  Company Number: US-BAYER-201031850NA

PATIENT
  Age: 19 Year
  Sex: Female
  Weight: 95.238 kg

DRUGS (2)
  1. YAZ [Suspect]
     Indication: CONTRACEPTION
     Dosage: UNK
     Dates: start: 20080801, end: 20090701
  2. YAZ [Suspect]
     Indication: ACNE

REACTIONS (9)
  - FLATULENCE [None]
  - DYSPEPSIA [None]
  - CONSTIPATION [None]
  - CHOLECYSTECTOMY [None]
  - SCAR [None]
  - ABDOMINAL DISTENSION [None]
  - ANXIETY [None]
  - DIARRHOEA [None]
  - DEPRESSION [None]
